FAERS Safety Report 6933045-8 (Version None)
Quarter: 2010Q3

REPORT INFORMATION
  Report Type: 
  Country: None (occurrence: None)
  Receive Date: 20100818
  Receipt Date: 20100818
  Transmission Date: 20110219
  Serious: Yes (Life-Threatening)
  Sender: FDA-Public Use
  Company Number: None

PATIENT
  Age: 62 Year
  Sex: Male
  Weight: 78.02 kg

DRUGS (1)
  1. LISINOPRIL [Suspect]
     Indication: HYPERTENSION
     Dosage: 40MG EVERY DAY PO
     Route: 048
     Dates: start: 20031114, end: 20091225

REACTIONS (4)
  - ANGIOEDEMA [None]
  - FALL [None]
  - HYPOTENSION [None]
  - PHARYNGEAL OEDEMA [None]
